FAERS Safety Report 23544982 (Version 1)
Quarter: 2024Q1

REPORT INFORMATION
  Report Type: Spontaneous
  Country: US (occurrence: None)
  Receive Date: 20240218
  Receipt Date: 20240218
  Transmission Date: 20240410
  Serious: Yes (Disabling)
  Sender: FDA-Public Use
  Company Number: None

PATIENT
  Age: 68 Year
  Sex: Male
  Weight: 103.5 kg

DRUGS (3)
  1. DEXAMETHASONE SODIUM PHOSPHATE\MOXIFLOXACIN HYDROCHLORIDE [Suspect]
     Active Substance: DEXAMETHASONE SODIUM PHOSPHATE\MOXIFLOXACIN HYDROCHLORIDE
     Dosage: OTHER QUANTITY : 1 INJECTION(S);?
     Route: 047
     Dates: start: 20231030, end: 20231030
  2. LOSARTAN [Concomitant]
     Active Substance: LOSARTAN
  3. Artirtovastatin [Concomitant]

REACTIONS (3)
  - Keratitis [None]
  - Injury corneal [None]
  - Toxic anterior segment syndrome [None]

NARRATIVE: CASE EVENT DATE: 20231030
